FAERS Safety Report 4859729-3 (Version None)
Quarter: 2005Q4

REPORT INFORMATION
  Report Type: 
  Country: None (occurrence: None)
  Receive Date: 20051219
  Receipt Date: 20051212
  Transmission Date: 20060501
  Serious: Yes (Other)
  Sender: FDA-Public Use
  Company Number: US-BRISTOL-MYERS SQUIBB COMPANY-13212758

PATIENT
  Age: 53 Year
  Sex: Male

DRUGS (4)
  1. CETUXIMAB [Suspect]
     Indication: COLORECTAL CANCER METASTATIC
     Dosage: DOSE 176 MG-RECEIVED APPROXIMATELY 50 ML.
     Route: 042
     Dates: start: 20051212, end: 20051212
  2. LISINOPRIL [Concomitant]
     Dates: start: 20051024
  3. ATENOLOL [Concomitant]
     Dates: start: 20051024
  4. BENADRYL [Concomitant]
     Indication: PREMEDICATION
     Dates: start: 20051212, end: 20051212

REACTIONS (2)
  - ABDOMINAL PAIN [None]
  - BONE PAIN [None]
